FAERS Safety Report 11293343 (Version 1)
Quarter: 2015Q3

REPORT INFORMATION
  Report Type: Spontaneous
  Country: US (occurrence: US)
  Receive Date: 20150722
  Receipt Date: 20150722
  Transmission Date: 20151125
  Serious: Yes (Hospitalization, Other)
  Sender: FDA-Public Use
  Company Number: US-ASTRAZENECA-2015SE68521

PATIENT
  Age: 85 Year
  Sex: Female

DRUGS (10)
  1. FLOVENT [Suspect]
     Active Substance: FLUTICASONE PROPIONATE
     Indication: ASTHMA
     Dosage: 1 PUFFS TWICE DAILY (2 PUFFS DAILY)
     Route: 055
     Dates: start: 2013
  2. CALCIUM [Concomitant]
     Active Substance: CALCIUM
  3. DILTIAZEM [Concomitant]
     Active Substance: DILTIAZEM
  4. SYNTHROID [Concomitant]
     Active Substance: LEVOTHYROXINE SODIUM
  5. PROAIR HFA [Concomitant]
     Active Substance: ALBUTEROL SULFATE
  6. SYMBICORT [Suspect]
     Active Substance: BUDESONIDE\FORMOTEROL FUMARATE DIHYDRATE
     Indication: CHRONIC OBSTRUCTIVE PULMONARY DISEASE
     Dosage: 1 PUFF, TWO TIMES A DAY
     Route: 055
     Dates: start: 2013, end: 20150621
  7. ADVAIR DISKUS [Suspect]
     Active Substance: FLUTICASONE PROPIONATE\SALMETEROL XINAFOATE
     Indication: CHRONIC OBSTRUCTIVE PULMONARY DISEASE
     Dosage: 100/50 UG 1 PUFFS TWICE DAILY (2 PUFFS DAILY)
     Route: 055
     Dates: start: 20150621
  8. ADVAIR DISKUS [Suspect]
     Active Substance: FLUTICASONE PROPIONATE\SALMETEROL XINAFOATE
     Indication: ASTHMA
     Dosage: 100/50 UG 1 PUFFS TWICE DAILY (2 PUFFS DAILY)
     Route: 055
     Dates: start: 20150621
  9. ENALAPRIL [Concomitant]
     Active Substance: ENALAPRIL
  10. VITAMIN D [Concomitant]
     Active Substance: CHOLECALCIFEROL

REACTIONS (8)
  - Chest pain [Unknown]
  - Chronic obstructive pulmonary disease [Unknown]
  - Device use error [Unknown]
  - Bone marrow disorder [Unknown]
  - Thyroid disorder [Not Recovered/Not Resolved]
  - Hypertension [Not Recovered/Not Resolved]
  - Osteoporosis [Not Recovered/Not Resolved]
  - Dysphonia [Not Recovered/Not Resolved]
